FAERS Safety Report 7157067 (Version 5)
Quarter: 2012Q4

REPORT INFORMATION
  Report Type: 
  Country: JP (occurrence: JP)
  Receive Date: 20091023
  Receipt Date: 20121106
  Transmission Date: 20130627
  Serious: Yes (Hospitalization)
  Sender: FDA-Public Use
  Company Number: JP-SANOFI-AVENTIS-200912894JP

PATIENT
  Age: 67 Year
  Sex: Male
  Weight: 81 kg

DRUGS (3)
  1. TAXOTERE [Suspect]
     Indication: PROSTATE CANCER RECURRENT
     Route: 041
     Dates: start: 20081028, end: 20081209
  2. PREDONINE [Concomitant]
     Indication: PROSTATE CANCER RECURRENT
     Route: 048
     Dates: start: 20081028, end: 20090116
  3. PREDONINE [Concomitant]
     Indication: PROSTATE CANCER RECURRENT

REACTIONS (5)
  - Complex regional pain syndrome [Recovering/Resolving]
  - Sclerema [Recovering/Resolving]
  - Oedema peripheral [Recovering/Resolving]
  - Pain [Recovering/Resolving]
  - Blood creatine phosphokinase increased [Recovering/Resolving]
